FAERS Safety Report 23638414 (Version 2)
Quarter: 2024Q1

REPORT INFORMATION
  Report Type: Spontaneous
  Country: US (occurrence: US)
  Receive Date: 20240315
  Receipt Date: 20240318
  Transmission Date: 20240410
  Serious: Yes (Other)
  Sender: FDA-Public Use
  Company Number: US-PFIZER INC-202400063723

PATIENT
  Age: 69 Year
  Sex: Male

DRUGS (1)
  1. VELSIPITY [Suspect]
     Active Substance: ETRASIMOD ARGININE
     Indication: Colitis ulcerative
     Dosage: 2 MG, 1X/DAY
     Route: 048

REACTIONS (4)
  - Non-alcoholic steatohepatitis [Unknown]
  - Large intestine polyp [Unknown]
  - Haemorrhoids [Unknown]
  - Thyroid disorder [Unknown]
